FAERS Safety Report 8069997-5 (Version None)
Quarter: 2012Q1

REPORT INFORMATION
  Report Type: 
  Country: None (occurrence: None)
  Receive Date: 20120125
  Receipt Date: 20120123
  Transmission Date: 20120608
  Serious: Yes (Life-Threatening, Hospitalization)
  Sender: FDA-Public Use
  Company Number: JP-B.I. PHARMACEUTICALS,INC./RIDGEFIELD-2011-BP-10791NB

PATIENT
  Sex: Female
  Weight: 38.3 kg

DRUGS (18)
  1. LANSOPRAZOLE [Concomitant]
     Indication: GASTRITIS PROPHYLAXIS
     Dosage: 15 MG
     Route: 048
     Dates: start: 20100813
  2. CARVEDILOL [Concomitant]
     Indication: CARDIAC FAILURE
     Dosage: 2.5 MG
     Route: 048
     Dates: start: 20110108
  3. ALDACTONE [Concomitant]
     Indication: OEDEMA
     Dosage: 25 MG
     Route: 048
     Dates: start: 20100622
  4. LASIX [Concomitant]
     Indication: CARDIAC FAILURE
     Dosage: 40 MG
     Route: 042
     Dates: start: 20110407, end: 20110411
  5. LASIX [Concomitant]
     Dosage: 20 MG
     Route: 048
     Dates: start: 20100821, end: 20100930
  6. LASIX [Concomitant]
     Dosage: 40 MG
     Route: 048
     Dates: start: 20110413, end: 20110524
  7. LASIX [Concomitant]
     Dosage: 80 MG
     Route: 048
     Dates: start: 20110607, end: 20110704
  8. ALPROSTADIL [Concomitant]
     Indication: SKIN ULCER
     Route: 062
     Dates: start: 20110331
  9. LASIX [Concomitant]
     Dosage: 80 MG
     Route: 048
     Dates: start: 20100708, end: 20100712
  10. PRADAXA [Suspect]
     Indication: ATRIAL FIBRILLATION
     Dosage: 220 MG
     Route: 048
     Dates: start: 20110407, end: 20110415
  11. LASIX [Concomitant]
     Dosage: 60 MG
     Route: 048
     Dates: start: 20110525, end: 20110606
  12. LASIX [Concomitant]
     Dosage: 80 MG
     Route: 048
     Dates: start: 20110201, end: 20110209
  13. PRORENAL [Concomitant]
     Indication: ARTERIAL OCCLUSIVE DISEASE
     Dosage: 30 MG
     Route: 048
     Dates: start: 20110107
  14. LASIX [Concomitant]
     Dosage: 40 MG
     Route: 048
     Dates: start: 20100605, end: 20100707
  15. LASIX [Concomitant]
     Dosage: 40 MG
     Route: 048
     Dates: start: 20110725, end: 20110915
  16. ARICEPT [Concomitant]
     Indication: DEMENTIA
     Dosage: 5 MG
     Route: 048
     Dates: start: 20110108
  17. LASIX [Concomitant]
     Dosage: 40 MG
     Route: 048
     Dates: start: 20100713, end: 20100820
  18. LASIX [Concomitant]
     Dosage: 40 MG
     Route: 048
     Dates: start: 20110210, end: 20110228

REACTIONS (3)
  - NAUSEA [None]
  - FALL [None]
  - WHITE BLOOD CELL COUNT DECREASED [None]
